FAERS Safety Report 25760849 (Version 1)
Quarter: 2025Q3

REPORT INFORMATION
  Report Type: Report from Study
  Country: US (occurrence: US)
  Receive Date: 20250904
  Receipt Date: 20250904
  Transmission Date: 20251020
  Serious: Yes (Other)
  Sender: BAYER HEALTHCARE PHARMACEUTICALS INC.
  Company Number: US-BAYER-2025A117337

PATIENT
  Age: 63 Year
  Sex: Male

DRUGS (1)
  1. NUBEQA [Suspect]
     Active Substance: DAROLUTAMIDE
     Indication: Hormone-refractory prostate cancer
     Dosage: 600 MG, BID

REACTIONS (6)
  - Neuropathy peripheral [Unknown]
  - Brain fog [Recovered/Resolved]
  - Cough [Unknown]
  - Nasopharyngitis [None]
  - Gait disturbance [None]
  - Therapeutic response unexpected [None]

NARRATIVE: CASE EVENT DATE: 20250801
